FAERS Safety Report 19437051 (Version 1)
Quarter: 2021Q2

REPORT INFORMATION
  Report Type: Spontaneous
  Country: IN (occurrence: IN)
  Receive Date: 20210618
  Receipt Date: 20210618
  Transmission Date: 20210717
  Serious: Yes (Death)
  Sender: FDA-Public Use
  Company Number: IN-PFIZER INC-2021481579

PATIENT
  Age: 58 Year
  Sex: Female

DRUGS (4)
  1. PALBACE [Suspect]
     Active Substance: PALBOCICLIB
     Dosage: 100 MG, CYCLIC X 21 DAYS
     Dates: end: 20210603
  2. SHELCAL [CALCIUM CARBONATE;COLECALCIFEROL] [Concomitant]
  3. PALBACE [Suspect]
     Active Substance: PALBOCICLIB
     Indication: BREAST CANCER METASTATIC
     Dosage: 125 MG, 1X/DAY, X 21 DAYS
     Route: 048
     Dates: start: 20210224
  4. FEMARA [Concomitant]
     Active Substance: LETROZOLE
     Dosage: 2.5 MG, 1X/DAY

REACTIONS (1)
  - COVID-19 [Fatal]
